FAERS Safety Report 21181187 (Version 4)
Quarter: 2023Q1

REPORT INFORMATION
  Report Type: Report from Study
  Country: BG (occurrence: BG)
  Receive Date: 20220806
  Receipt Date: 20230121
  Transmission Date: 20230418
  Serious: Yes (Hospitalization)
  Sender: FDA-Public Use
  Company Number: None

PATIENT
  Age: 56 Year
  Sex: Female
  Weight: 78 kg

DRUGS (34)
  1. CARBOPLATIN [Suspect]
     Active Substance: CARBOPLATIN
     Indication: Non-small cell lung cancer metastatic
     Dates: start: 20211214
  2. PACLITAXEL [Suspect]
     Active Substance: PACLITAXEL
     Indication: Non-small cell lung cancer metastatic
     Dates: start: 20211214
  3. BEVACIZUMAB [Suspect]
     Active Substance: BEVACIZUMAB
     Indication: Non-small cell lung cancer metastatic
     Dates: start: 20211214
  4. ATEZOLIZUMAB [Suspect]
     Active Substance: ATEZOLIZUMAB
     Indication: Non-small cell lung cancer metastatic
     Dosage: MOST RECENT DATE OF ADMINISTRATION PRIOR TO SAE: 16/FEB/2022
     Dates: start: 20211214
  5. METRONIDAZOLE [Concomitant]
     Active Substance: METRONIDAZOLE
     Indication: Prophylaxis
     Dates: start: 20220414, end: 20220416
  6. SODIUM CHLORIDE [Concomitant]
     Active Substance: SODIUM CHLORIDE
     Dates: start: 20220322, end: 20220324
  7. TERCEF [Concomitant]
     Indication: Prophylaxis
     Dates: start: 20220414, end: 20220416
  8. LOPERAMIDE [Concomitant]
     Active Substance: LOPERAMIDE
     Dates: start: 20220414, end: 20220416
  9. DEXTROSE [Concomitant]
     Active Substance: DEXTROSE
     Indication: Prophylaxis
     Dates: start: 20220414, end: 20220416
  10. BENZALKONIUM CHLORIDE [Concomitant]
     Active Substance: BENZALKONIUM CHLORIDE
     Dates: start: 20211220, end: 20220204
  11. VITAMIN C [Concomitant]
     Active Substance: ASCORBIC ACID
     Dates: start: 20220414, end: 20220416
  12. FAMOTIDINE [Concomitant]
     Active Substance: FAMOTIDINE
     Indication: Prophylaxis
     Dates: start: 20220414, end: 20220416
  13. SOPHAFYLLIN [Concomitant]
     Dates: start: 20220322, end: 20220324
  14. DEXAMETHASONE [Concomitant]
     Active Substance: DEXAMETHASONE
     Indication: Prophylaxis
     Dates: start: 20220322, end: 20220322
  15. METHYLPREDNISOLONE [Concomitant]
     Active Substance: METHYLPREDNISOLONE
     Dates: start: 20220322, end: 20220324
  16. ATEZOLIZUMAB [Concomitant]
     Active Substance: ATEZOLIZUMAB
  17. CLONIDINE HYDROCHLORIDE [Concomitant]
     Active Substance: CLONIDINE HYDROCHLORIDE
     Dates: start: 20220216, end: 20220216
  18. Dexofen [Concomitant]
     Dates: start: 20220115, end: 20220205
  19. GENTAMICIN [Concomitant]
     Active Substance: GENTAMICIN
     Indication: Prophylaxis
     Dates: start: 20220414, end: 20220416
  20. Broncholytin [Concomitant]
     Indication: Cough
     Dates: start: 20220616
  21. BROMHEXINE [Concomitant]
     Active Substance: BROMHEXINE
     Dates: start: 20220322, end: 20220324
  22. BISOPROLOL FUMARATE [Concomitant]
     Active Substance: BISOPROLOL FUMARATE
  23. CLOPIDOGREL [Concomitant]
     Active Substance: CLOPIDOGREL BISULFATE
  24. EZETIMIBE [Concomitant]
     Active Substance: EZETIMIBE
     Indication: Bone pain
     Dosage: QD
     Dates: start: 20220927
  25. BENZALKONIUM CHLORIDE [Concomitant]
     Active Substance: BENZALKONIUM CHLORIDE
     Dates: start: 20211220, end: 20220204
  26. ASPIRIN [Concomitant]
     Active Substance: ASPIRIN
  27. ATORVASTATIN CALCIUM [Concomitant]
     Active Substance: ATORVASTATIN CALCIUM
     Dates: start: 20220927
  28. CIPROFLOXACIN [Concomitant]
     Active Substance: CIPROFLOXACIN
     Indication: Prophylaxis
     Dates: start: 20220927, end: 20221003
  29. RAMIPRIL [Concomitant]
     Active Substance: RAMIPRIL
     Dosage: BID
     Dates: start: 20220927
  30. PANTOPRAZOLE [Concomitant]
     Active Substance: PANTOPRAZOLE
     Indication: Prophylaxis
     Dates: start: 20220927
  31. ENTEROL [Concomitant]
     Indication: Prophylaxis
     Dates: start: 20220927, end: 20221003
  32. VITAMIN C [Concomitant]
     Active Substance: ASCORBIC ACID
     Dates: start: 20220322, end: 20220324
  33. DEXAMETHASONE [Concomitant]
     Active Substance: DEXAMETHASONE
     Indication: Prophylaxis
     Dates: start: 20220414, end: 20220414
  34. DEXTROSE [Concomitant]
     Active Substance: DEXTROSE
     Indication: Prophylaxis
     Dates: start: 20220322, end: 20220324

REACTIONS (12)
  - Folliculitis [Recovered/Resolved]
  - Bone pain [Not Recovered/Not Resolved]
  - Oropharyngeal pain [Recovered/Resolved]
  - Neuropathy peripheral [Not Recovered/Not Resolved]
  - Alopecia [Not Recovered/Not Resolved]
  - Cough [Not Recovered/Not Resolved]
  - Dizziness [Recovered/Resolved]
  - Headache [Recovered/Resolved]
  - Aphthous ulcer [Recovered/Resolved]
  - Dyspnoea [Recovered/Resolved]
  - Hypertension [Recovered/Resolved]
  - Chest pain [Not Recovered/Not Resolved]

NARRATIVE: CASE EVENT DATE: 20211220
